FAERS Safety Report 7920282-9 (Version None)
Quarter: 2011Q4

REPORT INFORMATION
  Report Type: 
  Country: None (occurrence: None)
  Receive Date: 20111115
  Receipt Date: 20111101
  Transmission Date: 20120403
  Serious: Yes (Hospitalization)
  Sender: FDA-Public Use
  Company Number: 2011MA016133

PATIENT
  Age: 67 Year
  Sex: Male

DRUGS (1)
  1. NAPROXEN [Suspect]
     Indication: OSTEOARTHRITIS
     Dosage: 500 MG;BID;PO
     Route: 048
     Dates: start: 20090312, end: 20090828

REACTIONS (1)
  - ACUTE MYOCARDIAL INFARCTION [None]
